FAERS Safety Report 5679875-4 (Version None)
Quarter: 2008Q1

REPORT INFORMATION
  Report Type: 
  Country: None (occurrence: None)
  Receive Date: 20080321
  Receipt Date: 20080310
  Transmission Date: 20080703
  Serious: Yes (Other)
  Sender: FDA-Public Use
  Company Number: 6041495

PATIENT
  Age: 77 Year
  Sex: Female

DRUGS (3)
  1. BISOPROLOL (BISOPROLOL) [Suspect]
     Indication: ANGINA PECTORIS
     Dosage: (1 IN 1 D), ORAL
  2. BISOPROLOL (BISOPROLOL) [Suspect]
     Indication: HYPERTENSION
     Dosage: (1 IN 1 D), ORAL
  3. BENDROFLUMETHIAZIDE (BENDROFLUMETHIAZIDE) [Concomitant]

REACTIONS (4)
  - DYSPNOEA [None]
  - FEELING ABNORMAL [None]
  - PALPITATIONS [None]
  - PHARMACEUTICAL PRODUCT COUNTERFEIT [None]
